FAERS Safety Report 8643844 (Version 8)
Quarter: 2013Q2

REPORT INFORMATION
  Report Type: Spontaneous
  Country: US (occurrence: US)
  Receive Date: 20120629
  Receipt Date: 20130503
  Transmission Date: 20140414
  Serious: Yes (Death, Hospitalization, Disabling, Other)
  Sender: FDA-Public Use
  Company Number: US-009507513-1206USA04635

PATIENT
  Sex: Female

DRUGS (5)
  1. FOSAMAX [Suspect]
     Indication: OSTEOPOROSIS
     Dosage: 10 MG, UNK
     Route: 048
     Dates: start: 19960207, end: 20051231
  2. FOSAMAX [Suspect]
     Indication: OSTEOPOROSIS PROPHYLAXIS
  3. FOSAMAX [Suspect]
     Indication: MULTIPLE FRACTURES
  4. VITAMINS (UNSPECIFIED) [Concomitant]
  5. BONIVA [Suspect]
     Indication: OSTEOPOROSIS
     Dosage: 150 MG, UNK
     Route: 048
     Dates: start: 20060101, end: 20120709

REACTIONS (82)
  - Femur fracture [Unknown]
  - Intramedullary rod insertion [Unknown]
  - Death [Fatal]
  - Low turnover osteopathy [Unknown]
  - Open reduction of fracture [Unknown]
  - Fall [Unknown]
  - Humerus fracture [Unknown]
  - Periprosthetic fracture [Unknown]
  - Pancytopenia [Unknown]
  - Hip arthroplasty [Unknown]
  - Dementia [Not Recovered/Not Resolved]
  - Hip arthroplasty [Unknown]
  - Sepsis [Unknown]
  - Urinary tract infection [Unknown]
  - Dehydration [Unknown]
  - Delirium [Unknown]
  - Microcytic anaemia [Not Recovered/Not Resolved]
  - Food poisoning [Recovered/Resolved]
  - Gastroenteritis [Recovered/Resolved]
  - Occult blood positive [Unknown]
  - Diverticulum [Unknown]
  - Diverticulitis [Unknown]
  - Urinary tract infection [Unknown]
  - Weight decreased [Unknown]
  - Colitis [Unknown]
  - Abnormal behaviour [Unknown]
  - Colitis [Unknown]
  - Malnutrition [Unknown]
  - Pneumonia [Unknown]
  - Hearing impaired [Unknown]
  - Appendicectomy [Unknown]
  - Knee arthroplasty [Unknown]
  - Tibia fracture [Unknown]
  - Pneumonia [Recovered/Resolved]
  - Urinary tract infection [Unknown]
  - Hospitalisation [Unknown]
  - Back pain [Unknown]
  - Depression [Unknown]
  - Lower limb fracture [Unknown]
  - Fall [Unknown]
  - Fracture [Unknown]
  - Fracture [Unknown]
  - Fall [Unknown]
  - Accident [Unknown]
  - Anaemia of chronic disease [Unknown]
  - Vitamin B12 deficiency [Unknown]
  - Hypertension [Unknown]
  - Upper limb fracture [Not Recovered/Not Resolved]
  - Pancytopenia [Not Recovered/Not Resolved]
  - Confusional state [Unknown]
  - Cataract operation [Unknown]
  - Intervertebral disc degeneration [Unknown]
  - Gallbladder enlargement [Unknown]
  - Diverticulum [Unknown]
  - Adrenal adenoma [Unknown]
  - Spinal compression fracture [Unknown]
  - Clostridium difficile colitis [Unknown]
  - Mental status changes [Unknown]
  - Meniscus injury [Unknown]
  - Osteoarthritis [Unknown]
  - Spinal osteoarthritis [Unknown]
  - Mental status changes [Unknown]
  - Abnormal loss of weight [Unknown]
  - Lethargy [Unknown]
  - Pain [Unknown]
  - Abasia [Not Recovered/Not Resolved]
  - Dysarthria [Unknown]
  - Incontinence [Unknown]
  - VIIth nerve paralysis [Unknown]
  - Pain [Unknown]
  - Spondylolisthesis [Unknown]
  - Synovial cyst [Unknown]
  - Barrett^s oesophagus [Unknown]
  - Blister [Unknown]
  - Muscular weakness [Unknown]
  - Cachexia [Unknown]
  - Flat affect [Unknown]
  - Arteriosclerosis [Unknown]
  - Pain in extremity [Unknown]
  - Gastrooesophageal reflux disease [Unknown]
  - Gastric ulcer [Unknown]
  - Pruritus [Unknown]
